FAERS Safety Report 15740385 (Version 4)
Quarter: 2019Q2

REPORT INFORMATION
  Report Type: Spontaneous
  Country: CH (occurrence: CH)
  Receive Date: 20181219
  Receipt Date: 20190513
  Transmission Date: 20190711
  Serious: Yes (Hospitalization, Other)
  Sender: FDA-Public Use
  Company Number: CH-MYLANLABS-2018M1092334

PATIENT
  Age: 70 Year
  Sex: Female
  Weight: 48 kg

DRUGS (30)
  1. TOREM [Suspect]
     Active Substance: TORSEMIDE
     Indication: PRODUCT USED FOR UNKNOWN INDICATION
     Dosage: 10 MILLIGRAM, QD
     Dates: start: 20181018, end: 20181021
  2. PERFALGAN [Suspect]
     Active Substance: ACETAMINOPHEN
     Indication: PRODUCT USED FOR UNKNOWN INDICATION
     Dosage: UNK
     Route: 042
     Dates: start: 20181011, end: 20181015
  3. DAFALGAN ODIS [Suspect]
     Active Substance: ACETAMINOPHEN
     Dosage: 1000 MILLIGRAM, PRN (AS NECESSARY, ROUTE:048 ; ROUTE:054)
     Dates: start: 20181022
  4. ADALAT [Suspect]
     Active Substance: NIFEDIPINE
     Dosage: UNK
     Dates: start: 20181016, end: 20181018
  5. NITRODERM [Suspect]
     Active Substance: NITROGLYCERIN
     Indication: PRODUCT USED FOR UNKNOWN INDICATION
     Dosage: 10 MILLIGRAM, QD
     Route: 062
     Dates: start: 20181016, end: 20181021
  6. NORADRENALIN                       /00127502/ [Concomitant]
     Active Substance: NOREPINEPHRINE BITARTRATE
     Dosage: 5 MICROGRAM PER MIN
     Route: 041
     Dates: start: 20181012, end: 20181012
  7. PROPOFOL MCT FRESENIUS [Concomitant]
     Dosage: ROUTE:041
     Route: 041
     Dates: start: 20181012, end: 20181012
  8. PANTOZOL [Suspect]
     Active Substance: PANTOPRAZOLE SODIUM
     Indication: PRODUCT USED FOR UNKNOWN INDICATION
     Dosage: 40 MILLIGRAM, QD (1-0-0)
     Route: 048
     Dates: start: 20181015, end: 20181115
  9. ESMERON [Concomitant]
     Active Substance: ROCURONIUM BROMIDE
     Dosage: IN TOTAL
     Dates: start: 20181012, end: 20181012
  10. MAGNESIUMSULFAT BICHSEL [Concomitant]
     Active Substance: MAGNESIUM SULFATE
     Dosage: 2 GRAM, TOTAL
     Dates: start: 20181012, end: 20181012
  11. MORPHINE HYDROCHLORIDE [Concomitant]
     Active Substance: MORPHINE HYDROCHLORIDE
     Dosage: 1 DOSAGE FORM, PRN
     Dates: start: 20181012, end: 20181012
  12. PHENYLEPHRIN SINTETICA [Concomitant]
     Active Substance: PHENYLEPHRINE HYDROCHLORIDE
     Dosage: 1 DOSAGE FORM, PRN 50-100 MCG
     Dates: start: 20181012, end: 20181012
  13. BUPIVACAIN SINTETICA [Concomitant]
     Active Substance: BUPIVACAINE HYDROCHLORIDE
     Dates: start: 20181012, end: 20181017
  14. CEFUROXIM FRESENIUS [Suspect]
     Active Substance: CEFUROXIME
     Indication: ANTIBIOTIC PROPHYLAXIS
     Dosage: IN TOTAL
     Route: 041
     Dates: start: 20181012, end: 20181012
  15. TRIATEC                            /00885601/ [Suspect]
     Active Substance: RAMIPRIL
     Indication: PRODUCT USED FOR UNKNOWN INDICATION
     Dosage: 5 MILLIGRAM, QD
     Route: 048
     Dates: start: 201811, end: 20181114
  16. DAFALGAN ODIS [Suspect]
     Active Substance: ACETAMINOPHEN
     Indication: POSTOPERATIVE ANALGESIA
     Dosage: PREVIOUSLY PARACETAMOL (PERFALGAN) 1G/100 ML I.V. ON 11.10.2018 AND 15.10.2018
     Route: 048
     Dates: start: 20181015, end: 20181021
  17. FENTANYL SINTETICA [Concomitant]
     Active Substance: FENTANYL CITRATE
     Dosage: ROUTE:008
     Route: 008
     Dates: start: 20181012, end: 20181017
  18. PASPERTIN (METOCLOPRAMIDE\METOCLOPRAMIDE HYDROCHLORIDE) [Suspect]
     Active Substance: METOCLOPRAMIDE HYDROCHLORIDE
     Indication: PROCEDURAL NAUSEA
     Dosage: ROUTE:041 ; ROUTE:041 ; ROUTE:048
     Route: 041
     Dates: start: 20181011, end: 20181012
  19. PASPERTIN (METOCLOPRAMIDE\METOCLOPRAMIDE HYDROCHLORIDE) [Suspect]
     Active Substance: METOCLOPRAMIDE HYDROCHLORIDE
     Dosage: 30 GTT DROPS, ROUTE:041 ; ROUTE:041 ; ROUTE:048
     Route: 048
     Dates: start: 20181017, end: 20181019
  20. METRONIDAZOLE VIFOR MEDICAL [Concomitant]
     Active Substance: METRONIDAZOLE
     Indication: ANTIBIOTIC PROPHYLAXIS
     Route: 041
     Dates: start: 20181012, end: 20181012
  21. ESMERON [Concomitant]
     Active Substance: ROCURONIUM BROMIDE
     Indication: INDUCTION AND MAINTENANCE OF ANAESTHESIA
     Dosage: IN TOTAL
     Dates: start: 20181012, end: 20181012
  22. PARACETAMOL [Suspect]
     Active Substance: ACETAMINOPHEN
     Indication: PRODUCT USED FOR UNKNOWN INDICATION
     Dosage: UNK, ONCE
     Dates: start: 20181106, end: 20181107
  23. DAFALGAN ODIS [Suspect]
     Active Substance: ACETAMINOPHEN
     Dosage: 1 DOSAGE FORM
     Route: 054
     Dates: start: 20181106, end: 20181107
  24. NOVALGIN (METAMIZOLE SODIUM) [Suspect]
     Active Substance: METAMIZOLE SODIUM
     Dosage: AS NECESSARY, ROUTE:041 ; ROUTE:048
     Dates: start: 20181021
  25. ADALAT [Suspect]
     Active Substance: NIFEDIPINE
     Indication: PRODUCT USED FOR UNKNOWN INDICATION
     Dosage: 20 MILLIGRAM, PRN
     Route: 048
     Dates: start: 20181013
  26. REMIFENTANIL FRESENIUS [Concomitant]
     Active Substance: REMIFENTANIL
     Indication: PRODUCT USED FOR UNKNOWN INDICATION
     Dates: start: 20181012, end: 20181012
  27. PASPERTIN (METOCLOPRAMIDE\METOCLOPRAMIDE HYDROCHLORIDE) [Suspect]
     Active Substance: METOCLOPRAMIDE HYDROCHLORIDE
     Dosage: 10 MILLIGRAM, TID
     Route: 041
     Dates: start: 20181014, end: 20181016
  28. NOVALGIN (METAMIZOLE SODIUM) [Suspect]
     Active Substance: METAMIZOLE SODIUM
     Indication: POSTOPERATIVE ANALGESIA
     Dosage: 1000 MILLIGRAM, QID
     Route: 041
     Dates: start: 20181012, end: 20181014
  29. NOVALGIN (METAMIZOLE SODIUM) [Suspect]
     Active Substance: METAMIZOLE SODIUM
     Dosage: 40 GTT DROPS
     Route: 048
     Dates: start: 20181014, end: 20181021
  30. FRAGMIN [Suspect]
     Active Substance: DALTEPARIN SODIUM
     Indication: THROMBOSIS PROPHYLAXIS
     Dosage: 5000 INTERNATIONAL UNIT, QD
     Route: 058
     Dates: start: 20181010, end: 20181020

REACTIONS (2)
  - Prescribed overdose [Recovered/Resolved]
  - Drug-induced liver injury [Not Recovered/Not Resolved]

NARRATIVE: CASE EVENT DATE: 20181015
